FAERS Safety Report 15189782 (Version 2)
Quarter: 2018Q3

REPORT INFORMATION
  Report Type: Spontaneous
  Country: ES (occurrence: ES)
  Receive Date: 20180724
  Receipt Date: 20180724
  Transmission Date: 20181010
  Serious: Yes (Life-Threatening, Hospitalization)
  Sender: FDA-Public Use
  Company Number: PHHY2018ES050111

PATIENT
  Age: 7 Year
  Sex: Female
  Weight: 30 kg

DRUGS (16)
  1. CICLOSPORIN [Suspect]
     Active Substance: CYCLOSPORINE
     Dosage: 60 MG, Q12H
     Route: 065
     Dates: start: 20170831
  2. METILPREDNISOLONA [Concomitant]
     Active Substance: METHYLPREDNISOLONE
     Indication: PROPHYLAXIS
     Dosage: 8 MG, Q12H
     Route: 048
     Dates: start: 20170629, end: 20170713
  3. MYCOPHENOLIC ACID. [Suspect]
     Active Substance: MYCOPHENOLIC ACID
     Indication: PROPHYLAXIS
     Dosage: 450 MG, Q12H
     Route: 042
     Dates: start: 20170720
  4. FLUDARABINE PHOSPHATE. [Suspect]
     Active Substance: FLUDARABINE PHOSPHATE
     Indication: PROPHYLAXIS AGAINST TRANSPLANT REJECTION
     Dosage: 30 MG, QD (EVERY 24 HOUR)
     Route: 042
     Dates: start: 20170713, end: 20170716
  5. CICLOFOSFAMIDA [Suspect]
     Active Substance: CYCLOPHOSPHAMIDE
     Indication: PROPHYLAXIS AGAINST TRANSPLANT REJECTION
     Dosage: 1500 MG, QD (EVERY 24 HOURS)
     Route: 042
     Dates: start: 20170713, end: 20170726
  6. HEPARINA SODICA [Concomitant]
     Active Substance: HEPARIN SODIUM
     Indication: PROPHYLAXIS
     Dosage: 3000 IU, QD
     Route: 041
     Dates: start: 20170714, end: 20170828
  7. AMIKACINA [Concomitant]
     Active Substance: AMIKACIN SULFATE
     Indication: PROPHYLAXIS
     Dosage: 600 MG, QD (EVERY 24 HOURS)
     Route: 042
     Dates: start: 20170714, end: 20170717
  8. CICLOSPORIN [Suspect]
     Active Substance: CYCLOSPORINE
     Indication: PROPHYLAXIS
     Dosage: 60 MG, Q12H
     Route: 065
     Dates: start: 20170720
  9. ACICLOVIR [Concomitant]
     Active Substance: ACYCLOVIR
     Indication: PROPHYLAXIS
     Dosage: 500 MG, Q8H
     Route: 042
     Dates: start: 20170627, end: 20170814
  10. ENOXAPARINA SODICA [Concomitant]
     Active Substance: ENOXAPARIN SODIUM
     Indication: PROPHYLAXIS
     Dosage: 25 MG, QD
     Route: 058
     Dates: start: 20170627, end: 20170814
  11. CEFEPIMA [Concomitant]
     Active Substance: CEFEPIME HYDROCHLORIDE
     Indication: PROPHYLAXIS
     Dosage: 1500 MG, Q8H
     Route: 042
     Dates: start: 20170714, end: 20170719
  12. MESNA. [Concomitant]
     Active Substance: MESNA
     Indication: PROPHYLAXIS
     Dosage: 450 MG, QD
     Route: 042
     Dates: start: 20170713, end: 20170726
  13. SEPTRIN PAEDIATRIC [Concomitant]
     Active Substance: SULFAMETHOXAZOLE\TRIMETHOPRIM
     Indication: PROPHYLAXIS
     Dosage: 75 MG, Q12H
     Route: 048
     Dates: start: 20170627, end: 20170713
  14. AMFOTERICINA B [Concomitant]
     Indication: PROPHYLAXIS
     Dosage: 30 MG, QD (EVERY 24 HOURS)
     Route: 042
     Dates: start: 20170627, end: 20170814
  15. OMBERZOL [Concomitant]
     Indication: PROPHYLAXIS
     Dosage: 20 MG, QD
     Route: 048
     Dates: start: 20170629, end: 20170713
  16. AZITROMICINA [Concomitant]
     Active Substance: AZITHROMYCIN DIHYDRATE
     Indication: PROPHYLAXIS
     Dosage: 300 MG, BID
     Route: 048
     Dates: start: 20170627, end: 20171002

REACTIONS (7)
  - Pneumonia cytomegaloviral [Recovered/Resolved]
  - Klebsiella bacteraemia [Recovered/Resolved]
  - Agranulocytosis [Recovered/Resolved]
  - Mucosal inflammation [Recovered/Resolved]
  - Diarrhoea [Recovered/Resolved]
  - Thrombocytopenia [Not Recovered/Not Resolved]
  - Pulmonary alveolar haemorrhage [Recovered/Resolved]

NARRATIVE: CASE EVENT DATE: 20170723
